FAERS Safety Report 23964587 (Version 3)
Quarter: 2024Q3

REPORT INFORMATION
  Report Type: Report from Study
  Country: CL (occurrence: CL)
  Receive Date: 20240612
  Receipt Date: 20240830
  Transmission Date: 20241017
  Serious: Yes (Death, Life-Threatening)
  Sender: ABBVIE
  Company Number: CL-ABBVIE-5797244

PATIENT
  Age: 72 Year
  Sex: Female

DRUGS (2)
  1. HUMIRA [Suspect]
     Active Substance: ADALIMUMAB
     Indication: Rheumatoid arthritis
     Dosage: FORM STRENGTH: 40 MILLIGRAM
     Route: 058
     Dates: start: 20190104, end: 20240712
  2. HUMIRA [Suspect]
     Active Substance: ADALIMUMAB
     Dosage: FORM STRENGTH: 40 MILLIGRAM?START DATE: 2024,?END DATE 2024
     Route: 058

REACTIONS (5)
  - Oesophageal carcinoma [Fatal]
  - Oesophageal discomfort [Not Recovered/Not Resolved]
  - Abdominal distension [Not Recovered/Not Resolved]
  - Dysphonia [Not Recovered/Not Resolved]
  - Fluid intake reduced [Not Recovered/Not Resolved]

NARRATIVE: CASE EVENT DATE: 20240501
